FAERS Safety Report 8128956-4 (Version None)
Quarter: 2012Q1

REPORT INFORMATION
  Report Type: 
  Country: None (occurrence: None)
  Receive Date: 20120210
  Receipt Date: 20110626
  Transmission Date: 20120608
  Serious: No
  Sender: FDA-Public Use
  Company Number: US-BRISTOL-MYERS SQUIBB COMPANY-15857378

PATIENT
  Age: 52 Year
  Sex: Female
  Weight: 82 kg

DRUGS (2)
  1. PREDNISONE TAB [Suspect]
     Indication: ARTHRITIS
     Dosage: ONE
  2. ORENCIA [Suspect]
     Dosage: NO OF INF: 1
     Dates: start: 20110617

REACTIONS (7)
  - HEADACHE [None]
  - PAIN IN JAW [None]
  - OROPHARYNGEAL PAIN [None]
  - ARTHRITIS [None]
  - FLUSHING [None]
  - EAR PAIN [None]
  - SENSATION OF FOREIGN BODY [None]
